FAERS Safety Report 13718095 (Version 1)
Quarter: 2017Q3

REPORT INFORMATION
  Report Type: Report from Study
  Country: AU (occurrence: AU)
  Receive Date: 20170705
  Receipt Date: 20170705
  Transmission Date: 20171127
  Serious: Yes (Other)
  Sender: FDA-Public Use
  Company Number: AU-BAUSCH-BL-2017-020371

PATIENT
  Sex: Male

DRUGS (2)
  1. VISUDYNE [Suspect]
     Active Substance: VERTEPORFIN
     Dosage: SINGLE DOSE
     Route: 042
     Dates: start: 20170526
  2. VISUDYNE [Suspect]
     Active Substance: VERTEPORFIN
     Indication: CHOROIDAL HAEMANGIOMA
     Dosage: SINGLE DOSE
     Route: 042
     Dates: start: 20161028

REACTIONS (2)
  - Retinal oedema [Unknown]
  - Product use in unapproved indication [Unknown]
